FAERS Safety Report 12408770 (Version 1)
Quarter: 2016Q2

REPORT INFORMATION
  Report Type: Spontaneous
  Country: US (occurrence: US)
  Receive Date: 20160526
  Receipt Date: 20160526
  Transmission Date: 20160815
  Serious: No
  Sender: FDA-Public Use
  Company Number: US-PERRIGO-16US014851

PATIENT
  Age: 54 Year
  Sex: Female
  Weight: 97.52 kg

DRUGS (5)
  1. HYDROCODONE [Concomitant]
     Active Substance: HYDROCODONE
     Indication: EXOSTOSIS
     Dosage: 12.5 MG
     Route: 065
     Dates: start: 201511
  2. MICONAZOLE 3 COMBINATION PACK [Suspect]
     Active Substance: MICONAZOLE NITRATE
     Indication: VULVOVAGINAL MYCOTIC INFECTION
     Dosage: 200 MG, SINGLE
     Route: 067
     Dates: start: 20160401, end: 20160401
  3. OMEPRAZOLE. [Concomitant]
     Active Substance: OMEPRAZOLE
     Indication: GASTROOESOPHAGEAL REFLUX DISEASE
     Dosage: 40 MG
     Route: 065
     Dates: start: 201511
  4. AMLODIPINE [Concomitant]
     Active Substance: AMLODIPINE BESYLATE
     Indication: HYPERTENSION
     Dosage: UNK
     Route: 065
     Dates: start: 201511
  5. SIMVASTATIN. [Concomitant]
     Active Substance: SIMVASTATIN
     Indication: BLOOD CHOLESTEROL INCREASED
     Dosage: 20 MG
     Route: 065
     Dates: start: 201511

REACTIONS (1)
  - Drug ineffective [Unknown]

NARRATIVE: CASE EVENT DATE: 20160401
